FAERS Safety Report 18009635 (Version 2)
Quarter: 2020Q3

REPORT INFORMATION
  Report Type: Report from Study
  Country: US (occurrence: US)
  Receive Date: 20200710
  Receipt Date: 20200716
  Transmission Date: 20201103
  Serious: Yes (Death, Hospitalization)
  Sender: FDA-Public Use
  Company Number: US-BAYER-2020-134105

PATIENT
  Age: 83 Year
  Sex: Female

DRUGS (1)
  1. ADEMPAS [Suspect]
     Active Substance: RIOCIGUAT
     Indication: PULMONARY HYPERTENSION
     Dosage: 1.5 MG, BID
     Dates: start: 20200323

REACTIONS (3)
  - Death [Fatal]
  - Inappropriate schedule of product administration [None]
  - Hospitalisation [None]

NARRATIVE: CASE EVENT DATE: 20200708
